FAERS Safety Report 25666298 (Version 1)
Quarter: 2025Q3

REPORT INFORMATION
  Report Type: Spontaneous
  Country: CN (occurrence: CN)
  Receive Date: 20250811
  Receipt Date: 20250811
  Transmission Date: 20251020
  Serious: Yes (Other)
  Sender: ELI LILLY AND COMPANY
  Company Number: CN-ELI_LILLY_AND_COMPANY-CN202508001940

PATIENT
  Age: 52 Year
  Weight: 93 kg

DRUGS (4)
  1. MOUNJARO [Suspect]
     Active Substance: TIRZEPATIDE
     Indication: Weight control
     Dosage: 2.5 MG, WEEKLY (1/W)
     Route: 058
     Dates: start: 20250728
  2. MOUNJARO [Suspect]
     Active Substance: TIRZEPATIDE
     Indication: Weight control
     Dosage: 2.5 MG, WEEKLY (1/W)
     Route: 058
     Dates: start: 20250728
  3. MOUNJARO [Suspect]
     Active Substance: TIRZEPATIDE
     Indication: Hyperinsulinaemia
  4. MOUNJARO [Suspect]
     Active Substance: TIRZEPATIDE
     Indication: Hyperinsulinaemia

REACTIONS (4)
  - Loss of consciousness [Unknown]
  - Fall [Unknown]
  - Skin wound [Unknown]
  - Dizziness postural [Recovering/Resolving]

NARRATIVE: CASE EVENT DATE: 20250728
